FAERS Safety Report 9786627 (Version 2)
Quarter: 2014Q1

REPORT INFORMATION
  Report Type: Report from Study
  Country: BR (occurrence: BR)
  Receive Date: 20131227
  Receipt Date: 20140122
  Transmission Date: 20141002
  Serious: Yes (Other)
  Sender: FDA-Public Use
  Company Number: PHHY2013BR150462

PATIENT
  Sex: Male
  Weight: 65.66 kg

DRUGS (6)
  1. RITALINA [Suspect]
     Indication: ATTENTION DEFICIT/HYPERACTIVITY DISORDER
     Dosage: 0.5 DF, DAILY
  2. RITALINA [Suspect]
     Indication: LEARNING DISABILITY
     Dosage: 3DF, DAILY
     Dates: start: 199809
  3. RISPERIDONE [Suspect]
     Indication: DEPRESSION
     Dosage: 3 DF, DAILY
  4. RISPERIDONE [Suspect]
     Dosage: 1 DF,  DAILY
     Dates: start: 2011
  5. LITHIUM [Suspect]
     Indication: DEPRESSED MOOD
     Dosage: 2 TO 3 TABLETS, DAILY
     Dates: start: 2009, end: 2011
  6. OLANZAPINE [Concomitant]
     Dosage: 1 DF, DAILY
     Route: 048
     Dates: start: 2010, end: 2011

REACTIONS (4)
  - Asperger^s disorder [Recovered/Resolved]
  - Depression [Recovered/Resolved]
  - Learning disability [Recovered/Resolved]
  - Drug administered to patient of inappropriate age [Unknown]
